FAERS Safety Report 25242881 (Version 1)
Quarter: 2025Q2

REPORT INFORMATION
  Report Type: Report from Study
  Country: GB (occurrence: GB)
  Receive Date: 20250427
  Receipt Date: 20250427
  Transmission Date: 20250717
  Serious: Yes (Other)
  Sender: ABBVIE
  Company Number: GB-ABBVIE-6250556

PATIENT
  Age: 65 Year
  Sex: Female

DRUGS (1)
  1. RINVOQ [Suspect]
     Active Substance: UPADACITINIB
     Indication: Rheumatoid arthritis
     Dosage: FORM STRENGTH 15 MG?28 TABLET 4 X 7 TABLETS
     Route: 048

REACTIONS (1)
  - Hip fracture [Unknown]

NARRATIVE: CASE EVENT DATE: 20250401
